FAERS Safety Report 7422134-X (Version None)
Quarter: 2011Q2

REPORT INFORMATION
  Report Type: 
  Country: None (occurrence: None)
  Receive Date: 20110418
  Receipt Date: 20110413
  Transmission Date: 20111010
  Serious: Yes (Hospitalization)
  Sender: FDA-Public Use
  Company Number: US-B.I. PHARMACEUTICALS,INC./RIDGEFIELD-2011-BP-05735BP

PATIENT
  Sex: Female

DRUGS (13)
  1. PRADAXA [Suspect]
     Indication: ANTICOAGULANT THERAPY
     Dosage: 300 MG
     Route: 048
     Dates: start: 20110212, end: 20110221
  2. NOVOLOG MIX 70/30 [Concomitant]
  3. DILT-XR [Concomitant]
  4. ONE COURSE 50 PLUS VITAMIN [Concomitant]
  5. IRON FERROUS [Concomitant]
  6. COUMADIN [Concomitant]
  7. ASPIRIN [Concomitant]
  8. FUROSEMIDE [Concomitant]
  9. METOPROLOL SUCCINATE EXTENDED RELEASE [Concomitant]
  10. LOSARTAN POTASSIUM [Concomitant]
  11. METFORMIN HCL [Concomitant]
  12. LIPITOR [Concomitant]
  13. ASCORBIC ACID [Concomitant]

REACTIONS (2)
  - BLOOD COUNT ABNORMAL [None]
  - MELAENA [None]
